FAERS Safety Report 22172883 (Version 2)
Quarter: 2023Q2

REPORT INFORMATION
  Report Type: Spontaneous
  Country: CA (occurrence: CA)
  Receive Date: 20230404
  Receipt Date: 20230621
  Transmission Date: 20230721
  Serious: Yes (Other)
  Sender: FDA-Public Use
  Company Number: CA-Covis Pharma Europe B.V.-2023COV00715

PATIENT
  Age: 68 Year
  Sex: Female

DRUGS (11)
  1. ALVESCO [Suspect]
     Active Substance: CICLESONIDE
     Dosage: 4.0 DOSAGE FORMS 2 EVERY 1 DAYS
     Route: 055
  2. FORMOTEROL FUMARATE [Suspect]
     Active Substance: FORMOTEROL FUMARATE
     Indication: Product used for unknown indication
     Dosage: 1 DOSAGE FORMS 2 EVERY 1 DAYS
  3. DYMISTA [Suspect]
     Active Substance: AZELASTINE HYDROCHLORIDE\FLUTICASONE PROPIONATE
     Indication: Chronic sinusitis
  4. MEPOLIZUMAB [Suspect]
     Active Substance: MEPOLIZUMAB
     Indication: Product used for unknown indication
     Dosage: 100.0 MILLIGRAM
     Route: 058
  5. MEPOLIZUMAB [Suspect]
     Active Substance: MEPOLIZUMAB
     Indication: Asthma
     Dosage: 100.0 MILLIGRAM
     Route: 042
  6. MEPOLIZUMAB [Suspect]
     Active Substance: MEPOLIZUMAB
     Dosage: 100.0 MILLIGRAM
     Route: 042
  7. NASONEX [Suspect]
     Active Substance: MOMETASONE FUROATE
     Indication: Chronic sinusitis
  8. NYSTATIN [Suspect]
     Active Substance: NYSTATIN
     Route: 065
  9. ALBUTEROL [Suspect]
     Active Substance: ALBUTEROL
     Dosage: 2 DOSAGE FORMS 4 EVERY 1 DAYS
     Route: 065
  10. VENTOLIN [Suspect]
     Active Substance: ALBUTEROL SULFATE
     Dosage: 2 DOSAGE FORMS 4 EVERY 1 DAYS
     Route: 065
  11. PULMICORT TURBUHALER [Concomitant]
     Active Substance: BUDESONIDE
     Dosage: 2 DOSAGE FORMS 2 EVERY 1 DAYS
     Route: 065

REACTIONS (13)
  - Back disorder [Unknown]
  - Asthma [Unknown]
  - Chronic sinusitis [Unknown]
  - Dyspnoea [Unknown]
  - Gastrooesophageal reflux disease [Unknown]
  - Immunodeficiency [Unknown]
  - Loss of personal independence in daily activities [Unknown]
  - Mouth ulceration [Unknown]
  - Peripheral nerve lesion [Unknown]
  - Sciatica [Unknown]
  - Sleep disorder due to a general medical condition [Unknown]
  - Therapeutic product effect incomplete [Unknown]
  - Wheezing [Unknown]
